FAERS Safety Report 10143976 (Version 1)
Quarter: 2014Q2

REPORT INFORMATION
  Report Type: Spontaneous
  Country: US (occurrence: US)
  Receive Date: 20140430
  Receipt Date: 20140430
  Transmission Date: 20141212
  Serious: No
  Sender: FDA-Public Use
  Company Number: US-ASTRAZENECA-2014SE26322

PATIENT
  Age: 55 Year
  Sex: Male

DRUGS (4)
  1. PULMICORT FLEXHALER [Suspect]
     Indication: LUNG DISORDER
     Dosage: 180 MCG 1 PUFF TWICE DAILY
     Route: 055
     Dates: start: 2013, end: 2013
  2. PULMICORT FLEXHALER [Suspect]
     Indication: COUGH
     Dosage: 180 MCG 1 PUFF TWICE DAILY
     Route: 055
     Dates: start: 2013, end: 2013
  3. PULMICORT FLEXHALER [Suspect]
     Indication: LUNG DISORDER
     Dosage: 180 MCG 1 PUFF TWICE DAILY
     Route: 055
     Dates: start: 201404
  4. PULMICORT FLEXHALER [Suspect]
     Indication: COUGH
     Dosage: 180 MCG 1 PUFF TWICE DAILY
     Route: 055
     Dates: start: 201404

REACTIONS (2)
  - Cough [Not Recovered/Not Resolved]
  - Off label use [Not Recovered/Not Resolved]
